FAERS Safety Report 17127314 (Version 3)
Quarter: 2020Q1

REPORT INFORMATION
  Report Type: Spontaneous
  Country: JP (occurrence: JP)
  Receive Date: 20191209
  Receipt Date: 20200211
  Transmission Date: 20200409
  Serious: Yes (Hospitalization, Other)
  Sender: FDA-Public Use
  Company Number: JP-BRISTOL-MYERS SQUIBB COMPANY-BMS-2019-117539

PATIENT
  Age: 61 Year
  Sex: Male
  Weight: 71.6 kg

DRUGS (10)
  1. TRAMAL [Concomitant]
     Active Substance: TRAMADOL
     Indication: NON-SMALL CELL LUNG CANCER RECURRENT
     Dosage: 50 MILLIGRAM, Q8H
     Route: 048
  2. OXINORM [OXYCODONE HYDROCHLORIDE] [Concomitant]
     Active Substance: OXYCODONE HYDROCHLORIDE
     Indication: NON-SMALL CELL LUNG CANCER RECURRENT
     Dosage: 5 MILLIGRAM, PRN
     Route: 048
  3. LIVALO [Concomitant]
     Active Substance: PITAVASTATIN CALCIUM
     Indication: PRODUCT USED FOR UNKNOWN INDICATION
     Dosage: 1 MILLIGRAM, QD
     Route: 048
  4. OPDIVO [Suspect]
     Active Substance: NIVOLUMAB
     Indication: NON-SMALL CELL LUNG CANCER RECURRENT
     Dosage: 210 MILLIGRAM
     Route: 041
     Dates: start: 20160502
  5. TALC [Suspect]
     Active Substance: TALC
     Indication: PRODUCT USED FOR UNKNOWN INDICATION
     Route: 065
  6. NEXIUM I.V. [Concomitant]
     Active Substance: ESOMEPRAZOLE SODIUM
     Indication: NON-SMALL CELL LUNG CANCER RECURRENT
     Dosage: 10 MILLIGRAM, QD
     Route: 048
  7. CALONAL [Concomitant]
     Active Substance: ACETAMINOPHEN
     Indication: NON-SMALL CELL LUNG CANCER RECURRENT
     Dosage: 500 ABSENT, Q8H
     Route: 048
  8. MAGNESIUM OXIDE. [Concomitant]
     Active Substance: MAGNESIUM OXIDE
     Indication: NON-SMALL CELL LUNG CANCER RECURRENT
     Dosage: 330 MILLIGRAM, Q8H
     Route: 048
  9. OXYCONTIN [Concomitant]
     Active Substance: OXYCODONE HYDROCHLORIDE
     Indication: NON-SMALL CELL LUNG CANCER RECURRENT
     Dosage: 20 MILLIGRAM, Q12H
     Route: 048
  10. LYRICA [Concomitant]
     Active Substance: PREGABALIN
     Indication: NON-SMALL CELL LUNG CANCER RECURRENT
     Dosage: 150 MILLIGRAM, Q12H
     Route: 048

REACTIONS (5)
  - Off label use [Unknown]
  - Pleural effusion [Unknown]
  - Pericardial effusion [Unknown]
  - Interstitial lung disease [Recovering/Resolving]
  - Dyspnoea exertional [Unknown]

NARRATIVE: CASE EVENT DATE: 20160514
